FAERS Safety Report 4756679-8 (Version None)
Quarter: 2005Q3

REPORT INFORMATION
  Report Type: 
  Country: None (occurrence: None)
  Receive Date: 20050830
  Receipt Date: 20050818
  Transmission Date: 20060218
  Serious: Yes (Hospitalization)
  Sender: FDA-Public Use
  Company Number: FR-GLAXOSMITHKLINE-B0391523A

PATIENT
  Age: 54 Year
  Sex: Female
  Weight: 65 kg

DRUGS (3)
  1. PAROXETINE HCL [Suspect]
     Dosage: 20MG PER DAY
     Route: 048
     Dates: start: 20050702, end: 20050704
  2. XANAX [Concomitant]
     Dosage: .5MG THREE TIMES PER DAY
     Route: 048
     Dates: start: 20050702, end: 20050704
  3. IMOVANE [Concomitant]
     Dosage: 15MG PER DAY
     Route: 048
     Dates: start: 20050702, end: 20050704

REACTIONS (6)
  - BRAIN OEDEMA [None]
  - COMA [None]
  - DEPRESSION [None]
  - GAIT DISTURBANCE [None]
  - HYPONATRAEMIA [None]
  - MUTISM [None]
